FAERS Safety Report 13204370 (Version 1)
Quarter: 2017Q1

REPORT INFORMATION
  Report Type: Spontaneous
  Country: CA (occurrence: CA)
  Receive Date: 20170209
  Receipt Date: 20170209
  Transmission Date: 20170428
  Serious: Yes (Hospitalization)
  Sender: FDA-Public Use
  Company Number: CA-JNJFOC-20170203564

PATIENT
  Age: 65 Year
  Sex: Female

DRUGS (9)
  1. ASPIRIN. [Concomitant]
     Active Substance: ASPIRIN
     Route: 065
  2. ROSUVASTATIN. [Concomitant]
     Active Substance: ROSUVASTATIN
     Route: 065
  3. TELMISARTAN. [Concomitant]
     Active Substance: TELMISARTAN
     Route: 065
  4. METOPROLOL. [Concomitant]
     Active Substance: METOPROLOL
     Route: 065
  5. PLAVIX [Concomitant]
     Active Substance: CLOPIDOGREL BISULFATE
     Route: 065
  6. INVOKANA [Suspect]
     Active Substance: CANAGLIFLOZIN
     Indication: DIABETES MELLITUS
     Route: 048
     Dates: start: 201701
  7. METHOTREXATE. [Concomitant]
     Active Substance: METHOTREXATE
     Route: 065
  8. VALPROIC ACID. [Concomitant]
     Active Substance: VALPROIC ACID
     Route: 065
  9. INVOKANA [Suspect]
     Active Substance: CANAGLIFLOZIN
     Indication: DIABETES MELLITUS
     Route: 048
     Dates: end: 201602

REACTIONS (3)
  - Alanine aminotransferase increased [Unknown]
  - Seizure [Unknown]
  - Diabetic ketoacidosis [Unknown]

NARRATIVE: CASE EVENT DATE: 20160216
